FAERS Safety Report 6683829-9 (Version None)
Quarter: 2010Q2

REPORT INFORMATION
  Report Type: 
  Country: None (occurrence: None)
  Receive Date: 20100416
  Receipt Date: 20091215
  Transmission Date: 20101027
  Serious: Yes (Other)
  Sender: FDA-Public Use
  Company Number: A0834644A

PATIENT
  Age: 2 Year
  Sex: Female
  Weight: 15 kg

DRUGS (1)
  1. VUSION [Suspect]
     Indication: DERMATITIS DIAPER
     Route: 061
     Dates: start: 20080312, end: 20090316

REACTIONS (2)
  - FEBRILE CONVULSION [None]
  - VIRAL INFECTION [None]
